FAERS Safety Report 7180239-5 (Version None)
Quarter: 2010Q4

REPORT INFORMATION
  Report Type: 
  Country: None (occurrence: None)
  Receive Date: 20101221
  Receipt Date: 20101214
  Transmission Date: 20110411
  Serious: Yes (Other)
  Sender: FDA-Public Use
  Company Number: US-US-EMD SERONO, INC.-7000150

PATIENT
  Sex: Male

DRUGS (7)
  1. REBIF [Suspect]
     Indication: PRODUCT USED FOR UNKNOWN INDICATION
     Dates: start: 20080101
  2. PREDNISONE [Suspect]
     Route: 048
     Dates: start: 20080201, end: 20080101
  3. PREDNISONE [Suspect]
     Route: 048
     Dates: start: 20080101, end: 20080101
  4. PREDNISONE [Suspect]
     Route: 048
     Dates: start: 20080101, end: 20080101
  5. PREDNISONE [Suspect]
     Route: 048
     Dates: start: 20080101, end: 20080101
  6. PREDNISONE [Suspect]
     Route: 048
     Dates: start: 20071201, end: 20071201
  7. SOLU-MEDROL [Suspect]
     Route: 042

REACTIONS (1)
  - OSTEONECROSIS [None]
